FAERS Safety Report 4278937-6 (Version None)
Quarter: 2004Q1

REPORT INFORMATION
  Report Type: 
  Country: None (occurrence: None)
  Receive Date: 20040126
  Receipt Date: 20040120
  Transmission Date: 20041129
  Serious: Yes (Hospitalization)
  Sender: FDA-Public Use
  Company Number: FR-BRISTOL-MYERS SQUIBB COMPANY-12482261

PATIENT
  Age: 44 Year
  Sex: Female

DRUGS (10)
  1. VIDEX [Suspect]
     Route: 048
     Dates: start: 20010521, end: 20031112
  2. SUSTIVA [Suspect]
     Route: 048
     Dates: start: 20001127
  3. EPIVIR [Suspect]
     Route: 048
     Dates: start: 20010521
  4. ZIAGEN [Suspect]
     Route: 048
     Dates: start: 20010521
  5. MACROLIN [Concomitant]
     Dates: end: 20031022
  6. ANSATIPINE [Concomitant]
  7. ZECLAR [Concomitant]
  8. TRIFLUCAN [Concomitant]
  9. STILNOX [Concomitant]
  10. DEBRIDAT [Concomitant]

REACTIONS (1)
  - PANCREATITIS [None]
